FAERS Safety Report 22119420 (Version 2)
Quarter: 2023Q1

REPORT INFORMATION
  Report Type: Other
  Country: US (occurrence: None)
  Receive Date: 20230321
  Receipt Date: 20230322
  Transmission Date: 20230417
  Serious: No
  Sender: FDA-Public Use
  Company Number: US-ROCHE-3312653

PATIENT
  Age: 45 Year
  Sex: Female
  Weight: 69.008 kg

DRUGS (5)
  1. OCREVUS [Suspect]
     Active Substance: OCRELIZUMAB
     Indication: Multiple sclerosis
     Dosage: INFUSE 300MG 1 EVERY 2 WEEKS FOR TWO DOSES, INFUSE 600MG IV EVERY 6 MONTHS?DATE OF TREATMENT 16/FEB/
     Route: 042
     Dates: start: 202202
  2. TECFIDERA [Concomitant]
     Active Substance: DIMETHYL FUMARATE
  3. DOXYCYCLINE [Concomitant]
     Active Substance: DOXYCYCLINE
  4. DIMETHYL FUMARATE [Concomitant]
     Active Substance: DIMETHYL FUMARATE
  5. NAPROXEN [Concomitant]
     Active Substance: NAPROXEN

REACTIONS (1)
  - COVID-19 [Recovered/Resolved]

NARRATIVE: CASE EVENT DATE: 20230208
